FAERS Safety Report 13616816 (Version 1)
Quarter: 2017Q2

REPORT INFORMATION
  Report Type: Spontaneous
  Country: US (occurrence: US)
  Receive Date: 20170606
  Receipt Date: 20170606
  Transmission Date: 20170830
  Serious: No
  Sender: FDA-Public Use
  Company Number: US-SA-2016SA164460

PATIENT
  Age: 73 Year
  Sex: Female
  Weight: 52.5 kg

DRUGS (4)
  1. LANTUS SOLOSTAR [Suspect]
     Active Substance: INSULIN GLARGINE
     Indication: TYPE 2 DIABETES MELLITUS
     Dosage: DOSE:10 UNIT(S)
     Route: 065
     Dates: start: 2013
  2. LORAZEPAM. [Concomitant]
     Active Substance: LORAZEPAM
  3. APIDRA [Concomitant]
     Active Substance: INSULIN GLULISINE
     Indication: DIABETES MELLITUS
     Dates: start: 2015
  4. SOLOSTAR [Concomitant]
     Active Substance: DEVICE

REACTIONS (4)
  - Bedridden [Unknown]
  - Oropharyngeal discomfort [Unknown]
  - Cardiac disorder [Unknown]
  - Nasal discomfort [Unknown]
